FAERS Safety Report 4778662-9 (Version None)
Quarter: 2005Q3

REPORT INFORMATION
  Report Type: 
  Country: None (occurrence: None)
  Receive Date: 20050922
  Receipt Date: 20050919
  Transmission Date: 20060218
  Serious: Yes (Hospitalization, Other)
  Sender: FDA-Public Use
  Company Number: FRWYE995121SEP05

PATIENT
  Age: 50 Year
  Sex: Female

DRUGS (2)
  1. EFFEXOR [Suspect]
     Indication: DEPRESSION
     Dosage: 150 MG DAILY, ORAL
     Route: 048
     Dates: start: 20050801, end: 20050901
  2. LEXOMIL (BROMAZEPAM) [Concomitant]

REACTIONS (1)
  - IIIRD NERVE PARALYSIS [None]
